FAERS Safety Report 16042565 (Version 1)
Quarter: 2019Q1

REPORT INFORMATION
  Report Type: Spontaneous
  Country: FR (occurrence: FR)
  Receive Date: 20190306
  Receipt Date: 20190306
  Transmission Date: 20190418
  Serious: Yes (Other)
  Sender: FDA-Public Use
  Company Number: FR-MYLANLABS-2019M1020090

PATIENT
  Age: 76 Year
  Sex: Male
  Weight: 82 kg

DRUGS (1)
  1. FENOFIBRATE. [Suspect]
     Active Substance: FENOFIBRATE
     Indication: HYPERCHOLESTEROLAEMIA
     Dosage: 200 MILLIGRAM, QD
     Route: 048
     Dates: start: 201404, end: 201801

REACTIONS (7)
  - Amnesia [Recovered/Resolved]
  - Vertigo [Recovered/Resolved]
  - Angina pectoris [Recovered/Resolved]
  - Visual acuity reduced [Recovered/Resolved]
  - Night sweats [Recovering/Resolving]
  - Muscle spasms [Recovered/Resolved]
  - Myalgia [Recovering/Resolving]

NARRATIVE: CASE EVENT DATE: 2017
